FAERS Safety Report 12134789 (Version 3)
Quarter: 2019Q2

REPORT INFORMATION
  Report Type: Spontaneous
  Country: SG (occurrence: SG)
  Receive Date: 20160301
  Receipt Date: 20190524
  Transmission Date: 20190711
  Serious: Yes (Hospitalization)
  Sender: FDA-Public Use
  Company Number: SG-BAUSCH-BL-2016-004615

PATIENT
  Age: 36 Year
  Sex: Female

DRUGS (2)
  1. DIAZEPAM. [Suspect]
     Active Substance: DIAZEPAM
     Indication: BORDERLINE PERSONALITY DISORDER
     Dosage: LONG-TERM PRESCRIPTION
     Route: 065
  2. AMITRIPTYLINE [Suspect]
     Active Substance: AMITRIPTYLINE
     Indication: BORDERLINE PERSONALITY DISORDER
     Dosage: LONG-TERM PRESCRIPTION AND OVERDOSE
     Route: 065

REACTIONS (3)
  - Threatened labour [Not Recovered/Not Resolved]
  - Overdose [Unknown]
  - Maternal exposure during pregnancy [Unknown]
